FAERS Safety Report 7424079-8 (Version None)
Quarter: 2011Q2

REPORT INFORMATION
  Report Type: 
  Country: None (occurrence: None)
  Receive Date: 20110419
  Receipt Date: 20110408
  Transmission Date: 20111010
  Serious: Yes (Other)
  Sender: FDA-Public Use
  Company Number: CA-ELI_LILLY_AND_COMPANY-CA201104002392

PATIENT
  Sex: Male

DRUGS (24)
  1. ZYPREXA [Suspect]
     Dosage: 5 MG, ONE TABLET IN THE MORNING, 1/2 AT NOON, AND ONE TABLET IN THE EVENING
     Dates: start: 19990219
  2. LOXAPINE [Concomitant]
  3. CLORAZEPATE DIPOTASSIUM [Concomitant]
     Dosage: 1 DF, PRN
  4. ZYPREXA [Suspect]
     Dosage: 10 MG, QD
     Dates: start: 19980923
  5. CARBAMAZEPINE [Concomitant]
     Dosage: 200 MG, UNKNOWN
  6. SEROQUEL [Concomitant]
  7. ZYPREXA [Suspect]
     Dosage: 5 MG, TID
  8. ZYPREXA [Suspect]
     Dosage: 7.5 MG, QD
     Dates: start: 19981214
  9. ZYPREXA [Suspect]
     Dosage: 5 MG, UNKNOWN
  10. OXAZEPAM [Concomitant]
     Dosage: 15 MG, PRN
  11. ZYPREXA [Suspect]
     Indication: SCHIZOPHRENIA
     Dosage: 5 MG, QD
     Dates: start: 19980512
  12. ZYPREXA [Suspect]
     Dosage: 9 MG, QD
     Dates: start: 19980924
  13. ZYPREXA [Suspect]
     Dosage: 11.25 MG, QD
     Dates: start: 19981021
  14. ZYPREXA [Suspect]
     Dosage: 12.5 MG, QD
     Dates: start: 19980519
  15. ZYPREXA [Suspect]
     Dosage: 5 MG, TID
     Dates: start: 19990310
  16. ZYPREXA [Suspect]
     Dosage: 17.5 MG, QD
     Dates: start: 19990405
  17. ZYPREXA [Suspect]
     Dosage: 20 MG, QD
  18. ZYPREXA [Suspect]
     Dosage: 15 MG, QD
  19. VITAMIN B12 NOS [Concomitant]
  20. ZYPREXA [Suspect]
     Dosage: 2.5 MG, UNKNOWN
  21. ZYPREXA [Suspect]
     Dosage: 12.5 MG, QD
     Dates: start: 19980626
  22. ZYPREXA [Suspect]
     Dosage: 20 MG, QD
  23. ATIVAN [Concomitant]
  24. CHLORAL HYDRATE [Concomitant]
     Dosage: 500 MG, PRN

REACTIONS (7)
  - WEIGHT INCREASED [None]
  - INAPPROPRIATE ANTIDIURETIC HORMONE SECRETION [None]
  - RENAL FAILURE [None]
  - BLOOD PRESSURE DIASTOLIC INCREASED [None]
  - DIABETES MELLITUS [None]
  - MYOCARDIAL INFARCTION [None]
  - BLOOD TRIGLYCERIDES INCREASED [None]
